FAERS Safety Report 8610944-2 (Version None)
Quarter: 2012Q3

REPORT INFORMATION
  Report Type: 
  Country: None (occurrence: None)
  Receive Date: 20120822
  Receipt Date: 20120820
  Transmission Date: 20120928
  Serious: Yes (Death, Hospitalization, Other)
  Sender: FDA-Public Use
  Company Number: PHHY2012BR072275

PATIENT
  Sex: Male

DRUGS (6)
  1. DIOVAN HCT [Suspect]
     Indication: BLOOD PRESSURE
     Dosage: 1 DF (160/12.5MG), DAILY
     Route: 048
  2. ACETYLSALICYLIC ACID (SOMALDIN CARDIO) [Concomitant]
     Indication: ANTIPLATELET THERAPY
     Dosage: 100 MG, DAILY
  3. OMEPRAZOLE [Concomitant]
     Indication: ABDOMINAL DISCOMFORT
     Dosage: 40 MG, DAIY
  4. ATENOLOL [Concomitant]
     Indication: CARDIAC DISORDER
     Dosage: 1 DF, DAILY
  5. ZOLADEX [Concomitant]
     Indication: PROSTATE CANCER
     Dosage: UNK UKN, Q3MO
  6. SIMVASTATIN [Concomitant]
     Indication: BLOOD CHOLESTEROL
     Dosage: 40 MG, DAILY

REACTIONS (5)
  - URINARY TRACT INFECTION [None]
  - RESPIRATORY FAILURE [None]
  - CEREBROVASCULAR ACCIDENT [None]
  - RENAL FAILURE ACUTE [None]
  - SEPTIC SHOCK [None]
